FAERS Safety Report 4620648-9 (Version None)
Quarter: 2005Q1

REPORT INFORMATION
  Report Type: 
  Country: None (occurrence: None)
  Receive Date: 20050325
  Receipt Date: 20050307
  Transmission Date: 20050727
  Serious: Yes (Other)
  Sender: FDA-Public Use
  Company Number: A01200501404

PATIENT
  Age: 29 Year
  Sex: Male

DRUGS (4)
  1. STILNOX                 (ZOLPIDEM) [Suspect]
     Dosage: 100 MG ORAL
     Route: 048
     Dates: start: 20030923
  2. RISPERIDONE [Suspect]
     Indication: SCHIZOPHRENIA
     Dosage: 2 MG ORAL
     Route: 048
     Dates: start: 20030925, end: 20030925
  3. FLUVOXAMINE MALEATE [Suspect]
     Indication: DEPRESSION
     Dosage: 50 MG ORAL
     Route: 048
     Dates: start: 20030924, end: 20030924
  4. CLOZAPINE [Suspect]
     Indication: SCHIZOPHRENIA

REACTIONS (3)
  - ANGIONEUROTIC OEDEMA [None]
  - DRY SKIN [None]
  - OVERDOSE [None]
